FAERS Safety Report 7029775-2 (Version None)
Quarter: 2010Q4

REPORT INFORMATION
  Report Type: 
  Country: None (occurrence: None)
  Receive Date: 20101001
  Receipt Date: 20100921
  Transmission Date: 20110411
  Serious: Yes (Hospitalization)
  Sender: FDA-Public Use
  Company Number: DSJ-2010-10957

PATIENT
  Age: 77 Year
  Sex: Female
  Weight: 47.6 kg

DRUGS (3)
  1. OLMESARTAN MEDOXOMIL [Suspect]
     Indication: ESSENTIAL HYPERTENSION
     Dosage: 20 MG, PER ORAL
     Route: 048
     Dates: start: 20100616, end: 20100702
  2. ACTOS (PIOGLITAZONE) (PIOGLITAZONE) [Concomitant]
  3. FUROSEMIDE [Concomitant]

REACTIONS (3)
  - GENERALISED OEDEMA [None]
  - NEPHROTIC SYNDROME [None]
  - PLEURAL EFFUSION [None]
